FAERS Safety Report 14110108 (Version 8)
Quarter: 2018Q1

REPORT INFORMATION
  Report Type: Report from Study
  Country: GB (occurrence: GB)
  Receive Date: 20171020
  Receipt Date: 20180116
  Transmission Date: 20180508
  Serious: Yes (Other)
  Sender: FDA-Public Use
  Company Number: GB-ROCHE-1855124

PATIENT
  Sex: Female

DRUGS (14)
  1. ESBRIET [Suspect]
     Active Substance: PIRFENIDONE
     Route: 048
     Dates: start: 20161118
  2. NINTEDANIB [Suspect]
     Active Substance: NINTEDANIB
     Indication: IDIOPATHIC PULMONARY FIBROSIS
     Route: 065
  3. ESBRIET [Suspect]
     Active Substance: PIRFENIDONE
     Dosage: 534 MG
     Route: 048
     Dates: start: 20170921
  4. ESBRIET [Suspect]
     Active Substance: PIRFENIDONE
     Route: 048
  5. ESBRIET [Suspect]
     Active Substance: PIRFENIDONE
     Route: 048
  6. ESBRIET [Suspect]
     Active Substance: PIRFENIDONE
     Route: 048
  7. ESBRIET [Suspect]
     Active Substance: PIRFENIDONE
     Route: 048
     Dates: start: 20161118
  8. ESBRIET [Suspect]
     Active Substance: PIRFENIDONE
     Route: 048
     Dates: start: 20170908
  9. ESBRIET [Suspect]
     Active Substance: PIRFENIDONE
     Route: 048
     Dates: start: 20170908
  10. ESBRIET [Suspect]
     Active Substance: PIRFENIDONE
     Route: 048
  11. ESBRIET [Suspect]
     Active Substance: PIRFENIDONE
     Dosage: 534 MG
     Route: 048
  12. ESBRIET [Suspect]
     Active Substance: PIRFENIDONE
     Route: 048
  13. ESBRIET [Suspect]
     Active Substance: PIRFENIDONE
     Indication: IDIOPATHIC PULMONARY FIBROSIS
     Route: 048
     Dates: start: 20161103
  14. ESBRIET [Suspect]
     Active Substance: PIRFENIDONE
     Dosage: RESTARTED
     Route: 048
     Dates: start: 20170921

REACTIONS (43)
  - Cough [Recovered/Resolved]
  - Depressed mood [Unknown]
  - Oropharyngeal pain [Recovered/Resolved]
  - Photosensitivity reaction [Unknown]
  - Urine abnormality [Unknown]
  - Thermal burn [Recovering/Resolving]
  - Upper-airway cough syndrome [Unknown]
  - Dyspnoea [Unknown]
  - Mouth ulceration [Unknown]
  - Somnolence [Unknown]
  - Hyperaesthesia [Unknown]
  - Feeling hot [Unknown]
  - Rhinorrhoea [Unknown]
  - Decreased appetite [Unknown]
  - Dysgeusia [Unknown]
  - Catarrh [Not Recovered/Not Resolved]
  - Chromaturia [Unknown]
  - Sunburn [Recovering/Resolving]
  - Pruritus [Unknown]
  - Sensory disturbance [Unknown]
  - Fatigue [Not Recovered/Not Resolved]
  - Gingival swelling [Unknown]
  - Pruritus [Not Recovered/Not Resolved]
  - Influenza like illness [Unknown]
  - Erythema [Unknown]
  - Oxygen saturation decreased [Unknown]
  - Bedridden [Unknown]
  - Nasopharyngitis [Recovered/Resolved]
  - Sneezing [Recovered/Resolved]
  - Eye pain [Unknown]
  - Hypersomnia [Unknown]
  - Photophobia [Unknown]
  - Erythema [Recovered/Resolved]
  - Miliaria [Unknown]
  - Rash [Unknown]
  - Lip pain [Unknown]
  - Lip swelling [Unknown]
  - Hypoaesthesia [Unknown]
  - Diarrhoea [Unknown]
  - Skin burning sensation [Unknown]
  - Hepatic enzyme increased [Unknown]
  - Skin reaction [Unknown]
  - Pharyngitis [Unknown]
